APPROVED DRUG PRODUCT: FLURBIPROFEN
Active Ingredient: FLURBIPROFEN
Strength: 100MG
Dosage Form/Route: TABLET;ORAL
Application: A074405 | Product #001
Applicant: TEVA PHARMACEUTICALS USA INC
Approved: May 24, 1995 | RLD: No | RS: No | Type: DISCN